FAERS Safety Report 7769964-2 (Version None)
Quarter: 2011Q3

REPORT INFORMATION
  Report Type: 
  Country: None (occurrence: None)
  Receive Date: 20110922
  Receipt Date: 20110912
  Transmission Date: 20111222
  Serious: Yes (Hospitalization)
  Sender: FDA-Public Use
  Company Number: FR-GLAXOSMITHKLINE-B0746467A

PATIENT
  Sex: Female

DRUGS (12)
  1. FORLAX [Suspect]
     Indication: PRODUCT USED FOR UNKNOWN INDICATION
     Dosage: 2UNIT PER DAY
     Route: 048
     Dates: end: 20110817
  2. BACTRIM DS [Suspect]
     Indication: PRODUCT USED FOR UNKNOWN INDICATION
     Dosage: 1TAB TWO TIMES PER WEEK
     Route: 048
     Dates: start: 20110330, end: 20110817
  3. ASPIRIN [Concomitant]
     Route: 048
  4. LEVOTHYROXINE SODIUM [Concomitant]
     Indication: HYPOTHYROIDISM
  5. CALCIUM CARBONATE + CHOLECALCIFEROL [Suspect]
     Indication: PRODUCT USED FOR UNKNOWN INDICATION
     Dosage: 1UNIT PER DAY
     Route: 048
     Dates: end: 20110817
  6. FLUTICASONE PROPIONATE/SALMETEROL [Suspect]
     Indication: ASTHMA
     Route: 055
     Dates: end: 20110817
  7. MONUROL [Suspect]
     Indication: PRODUCT USED FOR UNKNOWN INDICATION
     Dosage: 3G PER DAY
     Route: 048
     Dates: start: 20110330, end: 20110817
  8. XANAX [Suspect]
     Indication: PRODUCT USED FOR UNKNOWN INDICATION
     Dosage: .125MG PER DAY
     Route: 048
     Dates: end: 20110817
  9. VENTOLIN [Concomitant]
     Indication: ASTHMA
  10. ARICEPT [Concomitant]
     Indication: DEMENTIA ALZHEIMER'S TYPE
  11. MEMANTINE [Suspect]
     Indication: DEMENTIA ALZHEIMER'S TYPE
     Dosage: 10MG PER DAY
     Route: 048
     Dates: end: 20110817
  12. LASIX [Concomitant]

REACTIONS (4)
  - MALAISE [None]
  - DYSPNOEA [None]
  - PANCREATIC ENZYMES INCREASED [None]
  - VOMITING [None]
